FAERS Safety Report 21611463 (Version 1)
Quarter: 2022Q4

REPORT INFORMATION
  Report Type: Spontaneous
  Country: JP (occurrence: JP)
  Receive Date: 20221117
  Receipt Date: 20221117
  Transmission Date: 20230113
  Serious: Yes (Other)
  Sender: FDA-Public Use
  Company Number: JP-PAIPHARMA-2022-JP-000497

PATIENT
  Age: 44 Year
  Sex: Female
  Weight: 56.1 kg

DRUGS (1)
  1. PREDNISOLONE SODIUM PHOSPHATE [Suspect]
     Active Substance: PREDNISOLONE SODIUM PHOSPHATE
     Indication: Autoimmune hepatitis
     Dosage: 40 MG DAILY
     Route: 048

REACTIONS (1)
  - Myasthenia gravis crisis [Recovered/Resolved]
